FAERS Safety Report 6215999-0 (Version None)
Quarter: 2009Q2

REPORT INFORMATION
  Report Type: 
  Country: None (occurrence: None)
  Receive Date: 20090605
  Receipt Date: 20090602
  Transmission Date: 20091009
  Serious: Yes (Hospitalization, Other)
  Sender: FDA-Public Use
  Company Number: FR-BRISTOL-MYERS SQUIBB COMPANY-14647200

PATIENT
  Age: 43 Year
  Sex: Male

DRUGS (8)
  1. PARACETAMOL [Suspect]
  2. COAPROVEL [Suspect]
  3. ARIXTRA [Suspect]
  4. EFFEXOR [Suspect]
  5. LANTUS [Suspect]
  6. DAONIL [Suspect]
  7. TAHOR [Suspect]
  8. ACUPAN [Suspect]

REACTIONS (1)
  - PULMONARY HYPERTENSION [None]
